FAERS Safety Report 6734393-7 (Version None)
Quarter: 2010Q2

REPORT INFORMATION
  Report Type: 
  Country: None (occurrence: None)
  Receive Date: 20100513
  Receipt Date: 20091118
  Transmission Date: 20101027
  Serious: Yes (Other)
  Sender: FDA-Public Use
  Company Number: 2009S1000518

PATIENT
  Age: 21 Year
  Sex: Female

DRUGS (5)
  1. CUBICIN [Suspect]
     Indication: BACTERAEMIA
     Dosage: 8 MG/K;Q48H;
  2. CUBICIN [Suspect]
     Indication: OFF LABEL USE
     Dosage: 8 MG/K;Q48H;
  3. CUBICIN [Suspect]
     Indication: OSTEOMYELITIS
     Dosage: 8 MG/K;Q48H;
  4. CUBICIN [Suspect]
     Indication: STAPHYLOCOCCAL INFECTION
     Dosage: 8 MG/K;Q48H;
  5. CLINDAMYCIN [Concomitant]

REACTIONS (1)
  - BLOOD CREATINE PHOSPHOKINASE INCREASED [None]
